FAERS Safety Report 7506704-6 (Version None)
Quarter: 2011Q2

REPORT INFORMATION
  Report Type: 
  Country: None (occurrence: None)
  Receive Date: 20110526
  Receipt Date: 20110520
  Transmission Date: 20111010
  Serious: Yes (Other)
  Sender: FDA-Public Use
  Company Number: US-BAYER-2011-024639

PATIENT
  Age: 46 Year
  Sex: Female
  Weight: 97.506 kg

DRUGS (5)
  1. AMARYL [Concomitant]
     Dosage: 4 MG, UNK
  2. GYLENYA [Concomitant]
     Indication: MULTIPLE SCLEROSIS
     Route: 048
  3. METFORMIN HCL [Concomitant]
     Dosage: 500 MG, UNK
  4. AVELOX [Suspect]
     Indication: UPPER RESPIRATORY TRACT INFECTION
     Dosage: UNK
     Route: 048
     Dates: start: 20110105, end: 20110314
  5. VITAMIN D [Concomitant]

REACTIONS (10)
  - FEELING ABNORMAL [None]
  - SKIN WARM [None]
  - THROAT TIGHTNESS [None]
  - VOMITING [None]
  - DYSPNOEA [None]
  - ERYTHEMA [None]
  - ANAPHYLACTIC REACTION [None]
  - URTICARIA [None]
  - DIARRHOEA [None]
  - FEELING HOT [None]
